FAERS Safety Report 16700729 (Version 2)
Quarter: 2019Q3

REPORT INFORMATION
  Report Type: Spontaneous
  Country: US (occurrence: US)
  Receive Date: 20190814
  Receipt Date: 20190823
  Transmission Date: 20191004
  Serious: Yes (Disabling, Other)
  Sender: FDA-Public Use
  Company Number: US-APOTEX-2019AP019621

PATIENT
  Sex: Female

DRUGS (1)
  1. OFLOXACIN. [Suspect]
     Active Substance: OFLOXACIN
     Indication: PRODUCT USE IN UNAPPROVED INDICATION
     Dosage: UNK
     Route: 047

REACTIONS (4)
  - Blindness unilateral [Not Recovered/Not Resolved]
  - Product use issue [Unknown]
  - Eye infection [Unknown]
  - Product dispensing error [Unknown]
